FAERS Safety Report 7518231-0 (Version None)
Quarter: 2011Q2

REPORT INFORMATION
  Report Type: 
  Country: None (occurrence: None)
  Receive Date: 20110512
  Receipt Date: 20110119
  Transmission Date: 20111010
  Serious: No
  Sender: FDA-Public Use
  Company Number: 1000018245

PATIENT
  Age: 66 Year
  Sex: Female

DRUGS (12)
  1. LYRICA [Concomitant]
  2. CEREFOLIN NAC (MULTIVITAMIN) (MULTIVITAMIN) [Concomitant]
  3. OXYCONTIN (OXYCODONE HYDROCHLORIDE) (OXYCODONE HYDROCHLORIDE) [Concomitant]
  4. SAVELLA [Suspect]
     Indication: FIBROMYALGIA
     Dosage: SEE IMAGE
     Route: 048
     Dates: start: 20101207, end: 20101208
  5. SAVELLA [Suspect]
     Indication: FIBROMYALGIA
     Dosage: SEE IMAGE
     Route: 048
     Dates: start: 20101209, end: 20101212
  6. SAVELLA [Suspect]
     Indication: FIBROMYALGIA
     Dosage: SEE IMAGE
     Route: 048
     Dates: start: 20101213
  7. SAVELLA [Suspect]
     Indication: FIBROMYALGIA
     Dosage: SEE IMAGE
     Route: 048
     Dates: start: 20101206, end: 20101206
  8. NASONEX (MOMETASONE FUROATE) (MOMETASONE FUROATE) [Concomitant]
  9. AMRIX (CYCLOBENZAPRINE) (CYCLOBENZAPRINE) [Concomitant]
  10. VOLTAREN GEL (DICLOFENAC) (DICLOFENAC) [Concomitant]
  11. LIDODERM (LIDOCAINE) (LIDOCAINE) [Concomitant]
  12. NORCO (VICODIN) (VICODIN) [Concomitant]

REACTIONS (2)
  - THERAPY RESPONDER [None]
  - THERAPEUTIC RESPONSE UNEXPECTED [None]
